FAERS Safety Report 5594037-7 (Version None)
Quarter: 2008Q1

REPORT INFORMATION
  Report Type: 
  Country: None (occurrence: None)
  Receive Date: 20080116
  Receipt Date: 20080103
  Transmission Date: 20080703
  Serious: Yes (Other)
  Sender: FDA-Public Use
  Company Number: DE-MERCK-0712DEU00016

PATIENT
  Age: 62 Year
  Sex: Female
  Weight: 62 kg

DRUGS (7)
  1. HYZAAR [Suspect]
     Indication: BLOOD PRESSURE INCREASED
     Route: 048
     Dates: start: 20021204, end: 20071120
  2. HYZAAR [Suspect]
     Route: 048
     Dates: start: 20071121, end: 20071201
  3. BISOPROLOL FUMARATE [Concomitant]
     Route: 048
  4. ATORVASTATIN CALCIUM [Concomitant]
     Route: 048
  5. AMLODIPINE BESYLATE [Concomitant]
     Route: 048
  6. BRINZOLAMIDE [Concomitant]
     Route: 047
  7. ASPIRIN [Concomitant]
     Route: 048

REACTIONS (41)
  - ARTERIOSCLEROSIS [None]
  - ATRIOVENTRICULAR BLOCK FIRST DEGREE [None]
  - BRADYCARDIA [None]
  - BREAST CANCER RECURRENT [None]
  - CARDIAC FAILURE CONGESTIVE [None]
  - COLLAGEN DISORDER [None]
  - DEPRESSION [None]
  - DIVERTICULUM INTESTINAL [None]
  - DIZZINESS [None]
  - DYSAESTHESIA [None]
  - DYSENTERY [None]
  - DYSLIPIDAEMIA [None]
  - DYSURIA [None]
  - EAR DISORDER [None]
  - ECZEMA [None]
  - GASTRITIS [None]
  - HAEMORRHOIDS [None]
  - HEADACHE [None]
  - HYPERCHLORHYDRIA [None]
  - HYPERTENSIVE CRISIS [None]
  - HYPOACUSIS [None]
  - INTERVERTEBRAL DISC PROTRUSION [None]
  - INTRAOCULAR PRESSURE INCREASED [None]
  - IRON METABOLISM DISORDER [None]
  - LEUKOPENIA [None]
  - MUSCLE SPASMS [None]
  - NASAL SEPTUM DEVIATION [None]
  - NEURALGIA [None]
  - OEDEMA [None]
  - PHOTODERMATOSIS [None]
  - POLYMYALGIA RHEUMATICA [None]
  - PSYCHIATRIC DECOMPENSATION [None]
  - RASH [None]
  - RESPIRATORY TRACT INFECTION [None]
  - ROSACEA [None]
  - SICCA SYNDROME [None]
  - SOMATISATION DISORDER [None]
  - STOMATITIS [None]
  - TINNITUS [None]
  - TRANSAMINASES INCREASED [None]
  - URINARY TRACT INFECTION [None]
